FAERS Safety Report 14688315 (Version 4)
Quarter: 2018Q2

REPORT INFORMATION
  Report Type: Report from Study
  Country: DE (occurrence: DE)
  Receive Date: 20180328
  Receipt Date: 20180424
  Transmission Date: 20180711
  Serious: Yes (Hospitalization)
  Sender: FDA-Public Use
  Company Number: DE-ROCHE-2090930

PATIENT
  Age: 36 Year
  Sex: Female
  Weight: 68.7 kg

DRUGS (21)
  1. NOVAMINSULFON [Concomitant]
     Active Substance: METAMIZOLE
     Indication: ABDOMINAL PAIN
     Route: 065
     Dates: start: 20171220
  2. CLEMASTIN [Concomitant]
     Active Substance: CLEMASTINE
     Route: 065
     Dates: start: 20180129
  3. RANITIDIN [Concomitant]
     Active Substance: RANITIDINE HYDROCHLORIDE
     Route: 065
     Dates: start: 20180129
  4. FRAGMIN [Concomitant]
     Active Substance: DALTEPARIN SODIUM
     Indication: THROMBOSIS PROPHYLAXIS
     Route: 065
     Dates: start: 20171220
  5. AKYNZEO [Concomitant]
     Active Substance: NETUPITANT\PALONOSETRON HYDROCHLORIDE
     Route: 065
     Dates: start: 20180129
  6. SPIRONOLACTON [Concomitant]
     Active Substance: SPIRONOLACTONE
     Route: 065
     Dates: start: 20171124, end: 20180312
  7. BEPANTHEN NOSE CREAM [Concomitant]
     Indication: MUCOSAL DRYNESS
     Route: 065
     Dates: start: 20180219, end: 20180322
  8. METOCLOPRAMID [Concomitant]
     Active Substance: METOCLOPRAMIDE
     Route: 065
     Dates: start: 20180129
  9. BEVACIZUMAB. [Suspect]
     Active Substance: BEVACIZUMAB
     Indication: OVARIAN CANCER
     Dosage: MOST RECENT DOSE PRIOR TO SAE ON 19/FEB/2018 WAS 1035 MG
     Route: 042
     Dates: start: 20180219
  10. KELTICAN FORTE [Concomitant]
     Indication: NEURALGIA
     Route: 065
     Dates: start: 20180122
  11. PANTOPRAZOL [Concomitant]
     Active Substance: PANTOPRAZOLE SODIUM
     Route: 065
     Dates: start: 20171124
  12. NEULASTA [Concomitant]
     Active Substance: PEGFILGRASTIM
     Route: 065
     Dates: start: 20180130
  13. ATEZOLIZUMAB. [Suspect]
     Active Substance: ATEZOLIZUMAB
     Indication: OVARIAN CANCER
     Dosage: MOST RECENT DOSE PRIOR TO SAE: 19/FEB/2018
     Route: 042
     Dates: start: 20180129
  14. PACLITAXEL. [Suspect]
     Active Substance: PACLITAXEL
     Indication: OVARIAN CANCER
     Dosage: MOST RECENT DOSE PRIOR TO SAE ON 19/FEB/2018 WAS 313.25 MG
     Route: 042
     Dates: start: 20180129
  15. CARBOPLATIN. [Suspect]
     Active Substance: CARBOPLATIN
     Indication: OVARIAN CANCER
     Dosage: AT A DOSE TO ACHIEVE A TARGET AREA UNDER THE CURVE (AUC) OF 6 MILLIGRAMS PER MILLILITER*MINUTE (MG/M
     Route: 042
     Dates: start: 20180129
  16. GABAPENTIN. [Concomitant]
     Active Substance: GABAPENTIN
     Indication: NEURALGIA
     Route: 065
     Dates: start: 20180122
  17. TORASEMID [Concomitant]
     Active Substance: TORSEMIDE
     Route: 065
     Dates: start: 20171124
  18. ALLOPURINOL. [Concomitant]
     Active Substance: ALLOPURINOL
     Route: 065
     Dates: start: 20171124, end: 20180312
  19. NOVAMINSULFON [Concomitant]
     Active Substance: METAMIZOLE
     Indication: MYALGIA
  20. DEXAMETHASON [Concomitant]
     Active Substance: DEXAMETHASONE
     Route: 065
     Dates: start: 20180129
  21. THIAMIZOL [Concomitant]
     Route: 042
     Dates: start: 20180314

REACTIONS (3)
  - Autoimmune thyroiditis [Not Recovered/Not Resolved]
  - General physical health deterioration [Recovered/Resolved]
  - Hyperthyroidism [Not Recovered/Not Resolved]

NARRATIVE: CASE EVENT DATE: 20180219
